FAERS Safety Report 5999857-2 (Version None)
Quarter: 2008Q4

REPORT INFORMATION
  Report Type: 
  Country: None (occurrence: None)
  Receive Date: 20081215
  Receipt Date: 20081202
  Transmission Date: 20090506
  Serious: Yes (Other)
  Sender: FDA-Public Use
  Company Number: FR-JNJFOC-20081203408

PATIENT
  Sex: Female

DRUGS (11)
  1. IXPRIM [Suspect]
     Route: 048
  2. IXPRIM [Suspect]
     Indication: ARTHRALGIA
     Dosage: OCT-2008
     Route: 048
  3. INIPOMP [Suspect]
     Indication: PROPHYLAXIS
     Route: 048
  4. NABUMETONE [Suspect]
     Route: 048
  5. NABUMETONE [Suspect]
     Indication: ARTHRALGIA
     Dosage: OCT-2008
     Route: 048
  6. PLAQUENIL [Concomitant]
     Route: 065
  7. PLAQUENIL [Concomitant]
     Route: 065
  8. PLAQUENIL [Concomitant]
     Route: 065
  9. SOLU-MEDROL [Concomitant]
  10. CORTANCYL [Concomitant]
  11. ENDOXAN [Concomitant]

REACTIONS (5)
  - BLISTER [None]
  - OEDEMA [None]
  - PRURITUS [None]
  - PYREXIA [None]
  - RASH ERYTHEMATOUS [None]
